FAERS Safety Report 10253447 (Version 1)
Quarter: 2014Q2

REPORT INFORMATION
  Report Type: Spontaneous
  Country: IT (occurrence: IT)
  Receive Date: 20140623
  Receipt Date: 20140623
  Transmission Date: 20141212
  Serious: Yes (Hospitalization, Other)
  Sender: FDA-Public Use
  Company Number: IT-ELI_LILLY_AND_COMPANY-IT201406004564

PATIENT
  Age: 70 Year
  Sex: Male

DRUGS (5)
  1. HUMULIN NPH [Suspect]
     Indication: DIABETES MELLITUS
     Dosage: 20 DF, QD
     Route: 058
     Dates: start: 20140526, end: 20140604
  2. ACTRAPID [Suspect]
     Indication: DIABETES MELLITUS
     Dosage: 18 DF, QD
     Route: 058
     Dates: start: 20140526, end: 20140604
  3. EFEXOR [Concomitant]
     Dosage: 150 MG, UNKNOWN
  4. PRAZENE [Concomitant]
     Dosage: 10 MG, UNK
  5. STILNOX [Concomitant]
     Dosage: 10 MG, UNK

REACTIONS (4)
  - Brain injury [Recovering/Resolving]
  - Cerebral haemorrhage [Recovering/Resolving]
  - Presyncope [Recovering/Resolving]
  - Hypoglycaemia [Recovering/Resolving]
